FAERS Safety Report 24054606 (Version 2)
Quarter: 2025Q2

REPORT INFORMATION
  Report Type: Spontaneous
  Country: PL (occurrence: PL)
  Receive Date: 20240705
  Receipt Date: 20250520
  Transmission Date: 20250716
  Serious: Yes (Other)
  Sender: AUROBINDO
  Company Number: PL-SUN PHARMACEUTICAL INDUSTRIES LTD-2024RR-453457

PATIENT
  Age: 28 Year
  Sex: Male

DRUGS (3)
  1. APIXABAN [Suspect]
     Active Substance: APIXABAN
     Indication: Thrombosis prophylaxis
     Route: 065
  2. NOREPINEPHRINE BITARTRATE [Suspect]
     Active Substance: NOREPINEPHRINE BITARTRATE
     Indication: Hypotension
     Route: 042
  3. FOSFOMYCIN [Concomitant]
     Active Substance: FOSFOMYCIN
     Indication: Urinary tract infection
     Route: 065

REACTIONS (2)
  - Hypovolaemia [Unknown]
  - Therapeutic product effect incomplete [Unknown]
